FAERS Safety Report 13170487 (Version 1)
Quarter: 2017Q1

REPORT INFORMATION
  Report Type: Spontaneous
  Country: US (occurrence: US)
  Receive Date: 20170131
  Receipt Date: 20170131
  Transmission Date: 20170428
  Serious: No
  Sender: FDA-Public Use
  Company Number: US-ALLERGAN-1661805US

PATIENT
  Sex: Male
  Weight: 104.31 kg

DRUGS (3)
  1. MICROZIDE [Suspect]
     Active Substance: HYDROCHLOROTHIAZIDE
     Indication: HYPERTENSION
     Dosage: 25 MG, QHS
     Route: 048
     Dates: start: 201402, end: 2016
  2. XANAX [Concomitant]
     Active Substance: ALPRAZOLAM
     Indication: BORDERLINE PERSONALITY DISORDER
     Dosage: UNK
  3. LISINOPRIL. [Concomitant]
     Active Substance: LISINOPRIL
     Indication: HYPERTENSION
     Dosage: UNK
     Route: 048

REACTIONS (6)
  - Vision blurred [Recovered/Resolved]
  - Eye pain [Not Recovered/Not Resolved]
  - Hypermetropia [Recovered/Resolved]
  - Dry mouth [Recovered/Resolved]
  - Thirst [Recovered/Resolved]
  - Erectile dysfunction [Recovered/Resolved]

NARRATIVE: CASE EVENT DATE: 2016
